FAERS Safety Report 21120872 (Version 1)
Quarter: 2022Q3

REPORT INFORMATION
  Report Type: Spontaneous
  Country: US (occurrence: US)
  Receive Date: 20220722
  Receipt Date: 20220722
  Transmission Date: 20221027
  Serious: No
  Sender: FDA-Public Use
  Company Number: US-PFIZER INC-202200991338

PATIENT
  Age: 68 Year
  Sex: Female
  Weight: 52.16 kg

DRUGS (1)
  1. PAXLOVID [Suspect]
     Active Substance: NIRMATRELVIR\RITONAVIR
     Indication: COVID-19 treatment
     Dosage: 100 MG, 2X/DAY (100MG, THREE TABLETS BY MOUTH EVERY TWELVE HOURS FOR FIVE DAYS)
     Route: 048
     Dates: start: 20220707, end: 20220712

REACTIONS (3)
  - Therapeutic product effect incomplete [Unknown]
  - Malaise [Unknown]
  - Incorrect dose administered [Unknown]
